FAERS Safety Report 11319445 (Version 3)
Quarter: 2015Q3

REPORT INFORMATION
  Report Type: Spontaneous
  Country: IT (occurrence: IT)
  Receive Date: 20150729
  Receipt Date: 20150805
  Transmission Date: 20151125
  Serious: Yes (Hospitalization)
  Sender: FDA-Public Use
  Company Number: IT-SUN PHARMACEUTICAL INDUSTRIES LTD-2015RR-100836

PATIENT

DRUGS (8)
  1. GABAPENTIN. [Suspect]
     Active Substance: GABAPENTIN
     Indication: PRODUCT USED FOR UNKNOWN INDICATION
     Dosage: 15 DF, TOTAL
     Route: 048
  2. ZYPREXA [Suspect]
     Active Substance: OLANZAPINE
     Indication: PRODUCT USED FOR UNKNOWN INDICATION
     Dosage: 8 DF, TOTAL
     Route: 048
  3. CARDURA [Suspect]
     Active Substance: DOXAZOSIN MESYLATE
     Indication: PRODUCT USED FOR UNKNOWN INDICATION
     Dosage: 9 DF, UNK
     Route: 048
  4. HALOPERIDOL. [Concomitant]
     Active Substance: HALOPERIDOL
     Indication: PRODUCT USED FOR UNKNOWN INDICATION
     Route: 048
  5. TOTALIP [Concomitant]
     Active Substance: ATORVASTATIN
     Indication: PRODUCT USED FOR UNKNOWN INDICATION
     Route: 048
  6. LASITONE [Concomitant]
     Active Substance: FUROSEMIDE\SPIRONOLACTONE
     Indication: PRODUCT USED FOR UNKNOWN INDICATION
     Route: 048
  7. ZYLORIC [Concomitant]
     Active Substance: ALLOPURINOL
     Indication: PRODUCT USED FOR UNKNOWN INDICATION
     Route: 048
  8. TAVOR [Suspect]
     Active Substance: LORAZEPAM
     Indication: PRODUCT USED FOR UNKNOWN INDICATION
     Dosage: TOTAL
     Route: 048

REACTIONS (2)
  - Drug abuse [Recovered/Resolved]
  - Sopor [Recovered/Resolved]

NARRATIVE: CASE EVENT DATE: 20080410
